FAERS Safety Report 24050565 (Version 1)
Quarter: 2024Q3

REPORT INFORMATION
  Report Type: Spontaneous
  Country: US (occurrence: US)
  Receive Date: 20240704
  Receipt Date: 20240704
  Transmission Date: 20241017
  Serious: Yes (Death, Other)
  Sender: AMGEN
  Company Number: US-AMGEN-USASP2024126990

PATIENT

DRUGS (3)
  1. PREDNISONE [Suspect]
     Active Substance: PREDNISONE
     Indication: Hormone-refractory prostate cancer
     Dosage: 5 MILLIGRAM, BID, ONCE IN MORNING, ONCE IN EVENING
     Route: 048
  2. ENZALUTAMIDE [Suspect]
     Active Substance: ENZALUTAMIDE
     Indication: Hormone-refractory prostate cancer
     Dosage: 160 MILLIGRAM, QD, MORNING
     Route: 048
  3. ABIRATERONE [Suspect]
     Active Substance: ABIRATERONE
     Indication: Hormone-refractory prostate cancer
     Dosage: 1000 MILLIGRAM, QD, IN EVENING ON EMPTY STOMACH
     Route: 065

REACTIONS (20)
  - Death [Fatal]
  - Cardiac disorder [Unknown]
  - Atrial fibrillation [Unknown]
  - Arthralgia [Unknown]
  - Bone pain [Unknown]
  - Decreased appetite [Unknown]
  - Aspartate aminotransferase increased [Unknown]
  - Alanine aminotransferase increased [Unknown]
  - Hypokalaemia [Unknown]
  - Hormone-refractory prostate cancer [Unknown]
  - Eastern Cooperative Oncology Group performance status worsened [Unknown]
  - Failure to thrive [Unknown]
  - Seizure [Unknown]
  - Oedema [Unknown]
  - Hypertension [Unknown]
  - Fatigue [Unknown]
  - Pain [Unknown]
  - Weight decreased [Unknown]
  - Adverse event [Unknown]
  - Drug interaction [Unknown]
